FAERS Safety Report 25856477 (Version 1)
Quarter: 2025Q3

REPORT INFORMATION
  Report Type: Spontaneous
  Country: MX (occurrence: MX)
  Receive Date: 20250929
  Receipt Date: 20250929
  Transmission Date: 20251021
  Serious: Yes (Other)
  Sender: NOVARTIS
  Company Number: MX-002147023-NVSC2025MX150421

PATIENT
  Age: 31 Year
  Sex: Male

DRUGS (3)
  1. MYCOPHENOLIC ACID [Suspect]
     Active Substance: MYCOPHENOLIC ACID
     Indication: Immunosuppressant drug therapy
     Route: 065
  2. TACROLIMUS [Suspect]
     Active Substance: TACROLIMUS
     Indication: Immunosuppressant drug level increased
     Route: 065
  3. PREDNISONE [Suspect]
     Active Substance: PREDNISONE
     Indication: Immunosuppressant drug therapy
     Route: 065

REACTIONS (7)
  - Pancytopenia [Unknown]
  - Leukopenia [Unknown]
  - Neutropenia [Unknown]
  - Haemophagocytic lymphohistiocytosis [Unknown]
  - Dyspnoea exertional [Unknown]
  - Pyrexia [Unknown]
  - Histoplasmosis [Unknown]
